FAERS Safety Report 19270117 (Version 4)
Quarter: 2021Q3

REPORT INFORMATION
  Report Type: Spontaneous
  Country: US (occurrence: US)
  Receive Date: 20210518
  Receipt Date: 20210921
  Transmission Date: 20211014
  Serious: No
  Sender: FDA-Public Use
  Company Number: US-PFIZER INC-2020280385

PATIENT
  Age: 75 Year
  Sex: Male
  Weight: 140.61 kg

DRUGS (2)
  1. GENOTROPIN [Suspect]
     Active Substance: SOMATROPIN
     Indication: HYPOPITUITARISM
     Dosage: 0.5 MG, DAILY
  2. GENOTROPIN [Suspect]
     Active Substance: SOMATROPIN
     Dosage: 0.4 MG, DAILY

REACTIONS (7)
  - Device issue [Unknown]
  - Device breakage [Unknown]
  - Off label use [Unknown]
  - Device use issue [Unknown]
  - Drug administered in wrong device [Unknown]
  - Drug dose omission by device [Unknown]
  - Device mechanical issue [Unknown]
